FAERS Safety Report 8200527-0 (Version None)
Quarter: 2012Q1

REPORT INFORMATION
  Report Type: 
  Country: None (occurrence: None)
  Receive Date: 20120302
  Receipt Date: 20120224
  Transmission Date: 20120608
  Serious: Yes (Hospitalization, Other)
  Sender: FDA-Public Use
  Company Number: 2012031405

PATIENT
  Age: 84 Year
  Sex: Female
  Weight: 67.1324 kg

DRUGS (22)
  1. PANTOPRAZOLE [Concomitant]
  2. FENOFIBRATE [Concomitant]
  3. LISINOPRIL [Concomitant]
  4. ALLOPURINOL [Concomitant]
  5. FOSRENOL [Concomitant]
  6. HIZENTRA [Suspect]
  7. TRAMADOL HCL [Concomitant]
  8. SYMBICORT [Concomitant]
  9. FLUTICASONE PROPIONATE [Concomitant]
  10. GLIPIZIDE [Concomitant]
  11. MUCINEX [Concomitant]
  12. LASIX [Concomitant]
  13. BYSTOLIC [Concomitant]
  14. HIZENTRA [Suspect]
     Indication: IMMUNODEFICIENCY COMMON VARIABLE
     Dosage: (7 G 1X/WEEK, 1 GM 5 ML VIAL; 35 ML IN 2 SITES IN 1-2 HOURS SUBCUTANEOUS), (2 GM 10 ML SUBCUTANEOUS)
     Route: 058
  15. HYDRALAZINE HCL [Concomitant]
  16. MECLIZINE [Concomitant]
  17. CLARITIN [Concomitant]
  18. LEVEMIR [Concomitant]
  19. CATAPRES [Concomitant]
  20. SENSIPAR [Concomitant]
  21. RENAL CAPS (RENAL) [Concomitant]
  22. METOCLOPRAMIDE [Concomitant]

REACTIONS (1)
  - PNEUMONIA [None]
